FAERS Safety Report 24881340 (Version 1)
Quarter: 2025Q1

REPORT INFORMATION
  Report Type: Spontaneous
  Country: US (occurrence: US)
  Receive Date: 20250124
  Receipt Date: 20250124
  Transmission Date: 20250409
  Serious: Yes (Other)
  Sender: INVENTIA HEALTHCARE PRIVATE LIMITED
  Company Number: US-Inventia-000772

PATIENT
  Age: 73 Year
  Sex: Female

DRUGS (8)
  1. DULOXETINE [Suspect]
     Active Substance: DULOXETINE
     Indication: Anxiety
     Dosage: FOR A DECADE, DOSE OF DULOXETINE HAD BEEN INCREASED
  2. APIXABAN [Concomitant]
     Active Substance: APIXABAN
  3. SOTALOL [Concomitant]
     Active Substance: SOTALOL
  4. DILTIAZEM [Concomitant]
     Active Substance: DILTIAZEM
  5. GABAPENTIN [Concomitant]
     Active Substance: GABAPENTIN
  6. RANITIDINE [Concomitant]
     Active Substance: RANITIDINE
  7. HYDROCHLOROTHIAZIDE [Concomitant]
     Active Substance: HYDROCHLOROTHIAZIDE
  8. DULOXETINE [Suspect]
     Active Substance: DULOXETINE
     Indication: Depression
     Dosage: FOR A DECADE, DOSE OF DULOXETINE HAD BEEN INCREASED

REACTIONS (4)
  - Atrial fibrillation [Recovered/Resolved]
  - Vasoconstriction [Recovered/Resolved]
  - Cyanosis [Recovered/Resolved]
  - Cognitive disorder [Unknown]
